FAERS Safety Report 19964373 (Version 1)
Quarter: 2021Q4

REPORT INFORMATION
  Report Type: Spontaneous
  Country: GB (occurrence: GB)
  Receive Date: 20211018
  Receipt Date: 20211018
  Transmission Date: 20220303
  Serious: Yes (Other)
  Sender: FDA-Public Use
  Company Number: None

PATIENT
  Sex: Female

DRUGS (1)
  1. APIXABAN [Suspect]
     Active Substance: APIXABAN
     Indication: Product used for unknown indication
     Dosage: 5 MILLIGRAM, BID
     Dates: start: 201611

REACTIONS (5)
  - Swelling face [Unknown]
  - Paraesthesia oral [Unknown]
  - Tongue disorder [Unknown]
  - Pruritus [Unknown]
  - Syncope [Unknown]

NARRATIVE: CASE EVENT DATE: 20210714
